FAERS Safety Report 25863641 (Version 2)
Quarter: 2025Q4

REPORT INFORMATION
  Report Type: Spontaneous
  Country: US (occurrence: US)
  Receive Date: 20250930
  Receipt Date: 20251003
  Transmission Date: 20260117
  Serious: Yes (Hospitalization)
  Sender: PFIZER
  Company Number: US-PFIZER INC-PV202500115739

PATIENT
  Age: 85 Year
  Sex: Female

DRUGS (5)
  1. TAFAMIDIS [Interacting]
     Active Substance: TAFAMIDIS
     Indication: Cardiac amyloidosis
     Dosage: 61 MG, 1X/DAY
  2. ATORVASTATIN [Interacting]
     Active Substance: ATORVASTATIN
     Indication: Cardiac amyloidosis
     Dosage: 80 MG, 1X/DAY
  3. AMIODARONE [Interacting]
     Active Substance: AMIODARONE
     Indication: Cardiac amyloidosis
     Dosage: 200 MG, 1X/DAY
  4. APIXABAN [Concomitant]
     Active Substance: APIXABAN
     Dosage: 2.5 MG, 2X/DAY
  5. TORSEMIDE [Concomitant]
     Active Substance: TORSEMIDE
     Dosage: 20 MG, 1X/DAY

REACTIONS (2)
  - Drug interaction [Recovering/Resolving]
  - Rhabdomyolysis [Recovering/Resolving]
